FAERS Safety Report 7536756-9 (Version None)
Quarter: 2011Q2

REPORT INFORMATION
  Report Type: 
  Country: None (occurrence: None)
  Receive Date: 20110609
  Receipt Date: 20110606
  Transmission Date: 20111010
  Serious: Yes (Life-Threatening, Hospitalization, Other)
  Sender: FDA-Public Use
  Company Number: D0071637A

PATIENT
  Age: 70 Year
  Sex: Male
  Weight: 77 kg

DRUGS (8)
  1. RAMIPRIL [Suspect]
     Dosage: 2.5MG PER DAY
     Route: 048
     Dates: start: 20100201, end: 20110119
  2. MIDAZOLAM [Concomitant]
     Route: 042
     Dates: start: 20110102, end: 20110113
  3. ZINACEF [Suspect]
     Route: 042
     Dates: start: 20110113, end: 20110119
  4. FRAXIPARIN [Concomitant]
     Dosage: 2850IU PER DAY
     Route: 058
     Dates: start: 20110104, end: 20110118
  5. PROTAPHANE [Concomitant]
     Route: 058
     Dates: start: 19950101
  6. FENISTIL [Concomitant]
     Route: 048
     Dates: start: 20110108, end: 20110118
  7. CLINDAMYCIN HCL [Concomitant]
     Route: 042
     Dates: start: 20110109, end: 20110113
  8. GENTAMICIN [Suspect]
     Route: 042
     Dates: start: 20110104, end: 20110118

REACTIONS (2)
  - DRUG INTERACTION [None]
  - RENAL FAILURE ACUTE [None]
